FAERS Safety Report 9366895 (Version 2)
Quarter: 2014Q1

REPORT INFORMATION
  Report Type: Spontaneous
  Country: US (occurrence: US)
  Receive Date: 20130625
  Receipt Date: 20140318
  Transmission Date: 20141002
  Serious: Yes (Death, Hospitalization)
  Sender: FDA-Public Use
  Company Number: US-GLAXOSMITHKLINE-A1028289A

PATIENT
  Sex: Male

DRUGS (1)
  1. AVANDIA [Suspect]
     Indication: DIABETES MELLITUS
     Dosage: 2MG PER DAY
     Route: 048
     Dates: start: 20030628, end: 20070904

REACTIONS (5)
  - Death [Fatal]
  - Myocardial infarction [Unknown]
  - Cardiac failure congestive [Unknown]
  - Myocardial ischaemia [Unknown]
  - Coronary artery disease [Unknown]
